FAERS Safety Report 6877728-7 (Version None)
Quarter: 2010Q3

REPORT INFORMATION
  Report Type: 
  Country: None (occurrence: None)
  Receive Date: 20100727
  Receipt Date: 20100625
  Transmission Date: 20110219
  Serious: No
  Sender: FDA-Public Use
  Company Number: US-ABBOTT-10P-163-0654555-00

PATIENT
  Sex: Female
  Weight: 61.29 kg

DRUGS (3)
  1. SYNTHROID [Suspect]
     Indication: HYPOTHYROIDISM
     Route: 048
  2. SYNTHROID [Suspect]
     Route: 048
     Dates: start: 20070801, end: 20100618
  3. SYNTHROID [Suspect]
     Dosage: 1/2 TAB AM AND 2 HRS AFTER LUNCH
     Route: 048
     Dates: start: 20100618

REACTIONS (6)
  - DIZZINESS [None]
  - FEELING ABNORMAL [None]
  - HYPOTENSION [None]
  - HYPOTHALAMO-PITUITARY DISORDER [None]
  - NEUROLOGICAL SYMPTOM [None]
  - TREMOR [None]
